FAERS Safety Report 10620009 (Version 3)
Quarter: 2014Q4

REPORT INFORMATION
  Report Type: Report from Study
  Country: US (occurrence: US)
  Receive Date: 20141202
  Receipt Date: 20141211
  Transmission Date: 20150529
  Serious: Yes (Other)
  Sender: FDA-Public Use
  Company Number: US-SA-2014SA098200

PATIENT
  Age: 52 Year
  Sex: Female

DRUGS (4)
  1. AUBAGIO [Suspect]
     Active Substance: TERIFLUNOMIDE
     Indication: MULTIPLE SCLEROSIS
     Route: 048
     Dates: start: 20140602, end: 20140818
  2. KEFLEX [Concomitant]
     Active Substance: CEPHALEXIN
  3. ASPIRIN. [Concomitant]
     Active Substance: ASPIRIN
     Indication: COAGULOPATHY
  4. AUBAGIO [Suspect]
     Active Substance: TERIFLUNOMIDE
     Indication: MULTIPLE SCLEROSIS
     Route: 048
     Dates: start: 20140927

REACTIONS (17)
  - Skin reaction [Unknown]
  - Diarrhoea [Unknown]
  - Urinary tract infection [Unknown]
  - Surgery [Unknown]
  - Rash erythematous [Unknown]
  - Cystitis [Unknown]
  - Urinary incontinence [Unknown]
  - Hepatic enzyme increased [Recovered/Resolved]
  - Nausea [Recovering/Resolving]
  - Blister [Recovering/Resolving]
  - Condition aggravated [Unknown]
  - Alopecia [Unknown]
  - Product blister packaging issue [Unknown]
  - Skin exfoliation [Unknown]
  - Vision blurred [Unknown]
  - Breast operation [Unknown]
  - Drug dose omission [Unknown]

NARRATIVE: CASE EVENT DATE: 20140715
